FAERS Safety Report 10598075 (Version 2)
Quarter: 2014Q4

REPORT INFORMATION
  Report Type: Report from Study
  Country: IT (occurrence: IT)
  Receive Date: 20141121
  Receipt Date: 20141121
  Transmission Date: 20150529
  Serious: Yes (Other)
  Sender: FDA-Public Use
  Company Number: IT-JNJFOC-20140925432

PATIENT
  Age: 72 Year
  Sex: Female

DRUGS (1)
  1. PALEXIA [Suspect]
     Active Substance: TAPENTADOL HYDROCHLORIDE
     Indication: BACK PAIN
     Route: 048

REACTIONS (3)
  - Rib fracture [Unknown]
  - Fall [Recovered/Resolved]
  - Drop attacks [Recovered/Resolved]

NARRATIVE: CASE EVENT DATE: 20130912
